FAERS Safety Report 7418136-X (Version None)
Quarter: 2011Q2

REPORT INFORMATION
  Report Type: 
  Country: None (occurrence: None)
  Receive Date: 20110415
  Receipt Date: 20110411
  Transmission Date: 20111010
  Serious: Yes (Hospitalization)
  Sender: FDA-Public Use
  Company Number: US-TEVA-274382USA

PATIENT
  Sex: Male

DRUGS (4)
  1. SAXAGLIPTIN/PLACEBO [Suspect]
     Indication: TYPE 2 DIABETES MELLITUS
     Dates: start: 20100915
  2. ALDACTAZIDE-A [Suspect]
     Indication: HYPERTENSION
  3. METFFORMIN HYDROCHLORIDE [Suspect]
     Indication: TYPE 2 DIABETES MELLITUS
  4. CARVEDILOL TABLETS, 3.125 MG,6.25 MG,25 MG [Suspect]
     Indication: HYPERTENSION

REACTIONS (1)
  - HYPERKALAEMIA [None]
